FAERS Safety Report 23843056 (Version 1)
Quarter: 2024Q2

REPORT INFORMATION
  Report Type: Spontaneous
  Country: US (occurrence: None)
  Receive Date: 20240509
  Receipt Date: 20240509
  Transmission Date: 20240715
  Serious: Yes (Other)
  Sender: FDA-Public Use
  Company Number: None

PATIENT
  Age: 42 Year
  Sex: Female

DRUGS (1)
  1. THYROID [Suspect]
     Active Substance: LEVOTHYROXINE\LIOTHYRONINE
     Indication: Hypothyroidism
     Dosage: FREQUENCY : DAILY;?
     Route: 048
     Dates: start: 20240323, end: 20240508

REACTIONS (4)
  - Hyperthyroidism [None]
  - Product preparation error [None]
  - Dose calculation error [None]
  - Incorrect dose administered [None]

NARRATIVE: CASE EVENT DATE: 20240509
